FAERS Safety Report 6500132-8 (Version None)
Quarter: 2009Q4

REPORT INFORMATION
  Report Type: 
  Country: None (occurrence: None)
  Receive Date: 20091127
  Receipt Date: 20081210
  Transmission Date: 20100525
  Serious: Yes (Other)
  Sender: FDA-Public Use
  Company Number: WAES 0710USA05711

PATIENT
  Age: 57 Year
  Sex: Male
  Weight: 82.5547 kg

DRUGS (2)
  1. FOSAMAX [Suspect]
     Indication: OSTEOPOROSIS
     Dosage: 70 MG/UNK/PO
     Route: 048
     Dates: start: 20000101, end: 20060801
  2. CORTICOSTEROIDS (UNSPECIFIED) [Concomitant]

REACTIONS (15)
  - ABDOMINAL DISTENSION [None]
  - ADVERSE DRUG REACTION [None]
  - ANAEMIA [None]
  - BLOOD CHOLESTEROL INCREASED [None]
  - BONE DISORDER [None]
  - COLONIC POLYP [None]
  - HYPERSENSITIVITY [None]
  - ORAL TORUS [None]
  - OSTEONECROSIS [None]
  - OSTEOPENIA [None]
  - OVERDOSE [None]
  - PEPTIC ULCER [None]
  - POLYARTHRITIS [None]
  - PSORIASIS [None]
  - ULCER [None]
